FAERS Safety Report 8345485-3 (Version None)
Quarter: 2012Q2

REPORT INFORMATION
  Report Type: 
  Country: None (occurrence: None)
  Receive Date: 20120508
  Receipt Date: 20120427
  Transmission Date: 20120825
  Serious: Yes (Other)
  Sender: FDA-Public Use
  Company Number: NL-MEDIMMUNE-MEDI-0014866

PATIENT
  Sex: Male
  Weight: 4.23 kg

DRUGS (4)
  1. SYNAGIS [Suspect]
     Indication: PREMATURE BABY
     Route: 030
     Dates: start: 20120109, end: 20120109
  2. SYNAGIS [Suspect]
     Route: 030
     Dates: start: 20120203, end: 20120101
  3. FERRO [Concomitant]
  4. ERGOCALCIFEROL [Concomitant]

REACTIONS (2)
  - RESPIRATORY ARREST [None]
  - CHOKING [None]
